FAERS Safety Report 9377692 (Version 2)
Quarter: 2013Q3

REPORT INFORMATION
  Report Type: Spontaneous
  Country: IT (occurrence: IT)
  Receive Date: 20130701
  Receipt Date: 20130807
  Transmission Date: 20140515
  Serious: Yes (Hospitalization)
  Sender: FDA-Public Use
  Company Number: IT-BRISTOL-MYERS SQUIBB COMPANY-19031731

PATIENT
  Age: 43 Year
  Sex: Male

DRUGS (1)
  1. YERVOY [Suspect]
     Indication: MALIGNANT MELANOMA
     Dosage: PRODUCT STRENGTH IS 5 MG/ML INFUSION SOLUTION
     Route: 042
     Dates: start: 20130610, end: 20130618

REACTIONS (2)
  - Anaemia [Unknown]
  - Melaena [Unknown]
